FAERS Safety Report 7773995-6 (Version None)
Quarter: 2011Q3

REPORT INFORMATION
  Report Type: 
  Country: None (occurrence: None)
  Receive Date: 20110921
  Receipt Date: 20110812
  Transmission Date: 20111222
  Serious: Yes (Hospitalization)
  Sender: FDA-Public Use
  Company Number: UTC-009140

PATIENT
  Age: 69 Year
  Sex: Female
  Weight: 73.18 kg

DRUGS (4)
  1. TYVASO [Suspect]
     Indication: PULMONARY HYPERTENSION
     Dosage: 144 MCG (36 MCG,4 IN 1 D),INHALATION
     Route: 055
     Dates: start: 20110616
  2. TRACLEER [Concomitant]
  3. DIURETICS (DIURETICS) [Concomitant]
  4. REVATIO [Concomitant]

REACTIONS (3)
  - COUGH [None]
  - VOMITING [None]
  - SYNCOPE [None]
